FAERS Safety Report 12276795 (Version 2)
Quarter: 2017Q1

REPORT INFORMATION
  Report Type: Spontaneous
  Country: US (occurrence: US)
  Receive Date: 20160418
  Receipt Date: 20170118
  Transmission Date: 20170428
  Serious: Yes (Other)
  Sender: FDA-Public Use
  Company Number: US-PFIZER INC-2016211870

PATIENT
  Age: 74 Year
  Sex: Female

DRUGS (4)
  1. XELJANZ [Suspect]
     Active Substance: TOFACITINIB CITRATE
     Dosage: 5 MG, 2X/DAY, (TWICE DAILY)
     Route: 048
     Dates: start: 2016
  2. ADVIL [Concomitant]
     Active Substance: IBUPROFEN
     Dosage: UNK
  3. LIPITOR [Concomitant]
     Active Substance: ATORVASTATIN CALCIUM
     Dosage: UNK
  4. XELJANZ [Suspect]
     Active Substance: TOFACITINIB CITRATE
     Indication: RHEUMATOID ARTHRITIS
     Dosage: 5 MG, UNK
     Dates: start: 20151111

REACTIONS (6)
  - Herpes zoster [Unknown]
  - Corneal infection [Unknown]
  - Diarrhoea [Unknown]
  - Wound infection [Unknown]
  - Laceration [Unknown]
  - Contusion [Unknown]

NARRATIVE: CASE EVENT DATE: 2016
